FAERS Safety Report 5046235-9 (Version None)
Quarter: 2006Q3

REPORT INFORMATION
  Report Type: 
  Country: None (occurrence: None)
  Receive Date: 20060710
  Receipt Date: 20060704
  Transmission Date: 20061208
  Serious: Yes (Hospitalization)
  Sender: FDA-Public Use
  Company Number: FR-BRISTOL-MYERS SQUIBB COMPANY-13434378

PATIENT
  Age: 72 Year
  Sex: Male
  Weight: 72 kg

DRUGS (9)
  1. APROVEL TABS 300 MG [Suspect]
     Indication: HYPERTENSION
     Route: 048
  2. DERMOVAL [Suspect]
  3. ESIDRIX [Suspect]
     Indication: HYPERTENSION
  4. FONX [Suspect]
  5. LOCOID [Suspect]
  6. MYCOSTER [Suspect]
  7. ASPIRIN [Concomitant]
     Dates: end: 20060601
  8. CIALIS [Concomitant]
  9. SINOVIAL [Concomitant]
     Dates: start: 20060301

REACTIONS (2)
  - SPONTANEOUS HAEMATOMA [None]
  - THROMBOCYTOPENIA [None]
